FAERS Safety Report 5576895-5 (Version None)
Quarter: 2007Q4

REPORT INFORMATION
  Report Type: 
  Country: None (occurrence: None)
  Receive Date: 20071228
  Receipt Date: 20071218
  Transmission Date: 20080405
  Serious: Yes (Other)
  Sender: FDA-Public Use
  Company Number: GB-RANBAXY-2007RR-12185

PATIENT

DRUGS (2)
  1. METFORMIN 500MG TABLETS [Suspect]
     Indication: POLYCYSTIC OVARIES
     Dosage: 500 MG, BID
     Route: 048
     Dates: start: 20070501, end: 20070601
  2. CLOMIPHENE CITRATE [Suspect]
     Indication: INFERTILITY
     Dosage: 100 MG, QD
     Route: 048
     Dates: start: 20070501

REACTIONS (3)
  - ALOPECIA [None]
  - HEADACHE [None]
  - WEIGHT INCREASED [None]
